FAERS Safety Report 6667129-9 (Version None)
Quarter: 2010Q1

REPORT INFORMATION
  Report Type: 
  Country: None (occurrence: None)
  Receive Date: 20100331
  Receipt Date: 20100318
  Transmission Date: 20100710
  Serious: Yes (Other)
  Sender: FDA-Public Use
  Company Number: 2010AL001791

PATIENT
  Age: 41 Year
  Sex: Female

DRUGS (3)
  1. VENLAFAXINE HCL [Suspect]
     Indication: DEPRESSION
     Dosage: 150 MG
     Dates: start: 20091103, end: 20091217
  2. CYPROTERONE [Concomitant]
  3. METFORMIN [Concomitant]

REACTIONS (2)
  - DYSPNOEA [None]
  - TACHYPNOEA [None]
